FAERS Safety Report 10732420 (Version 1)
Quarter: 2015Q1

REPORT INFORMATION
  Report Type: Spontaneous
  Country: US (occurrence: US)
  Receive Date: 20150123
  Receipt Date: 20150123
  Transmission Date: 20150721
  Serious: No
  Sender: FDA-Public Use
  Company Number: US-PFIZER INC-2015026728

PATIENT
  Age: 37 Year
  Sex: Female

DRUGS (9)
  1. ALBUTEROL SULFATE. [Concomitant]
     Active Substance: ALBUTEROL SULFATE
     Dosage: 0.083 %, 4X/DAY (USING NEBULIZER)
     Route: 055
  2. CYMBALTA [Concomitant]
     Active Substance: DULOXETINE HYDROCHLORIDE
     Dosage: 60 MG, 1X/DAY
     Route: 048
  3. ALBUTEROL SULFATE. [Concomitant]
     Active Substance: ALBUTEROL SULFATE
     Dosage: 90 ?G, AS NEEDED (2 PUFF USING INHALER EVERY FOUR TO SIX HOURS AS NEEDED)
     Route: 055
  4. CYCLOBENZAPRINE [Concomitant]
     Active Substance: CYCLOBENZAPRINE
     Dosage: 10 MG, AS NEEDED (AT BEDTIME AS NEEDED)
     Route: 048
  5. CYMBALTA [Concomitant]
     Active Substance: DULOXETINE HYDROCHLORIDE
     Dosage: 30 MG, 1X/DAY (TAKE AT BED TIME)
     Route: 048
  6. TRAMADOL [Concomitant]
     Active Substance: TRAMADOL
     Indication: PAIN
     Dosage: 100 MG, 3X/DAY (AS NEEDED)
     Route: 048
  7. LYRICA [Suspect]
     Active Substance: PREGABALIN
     Dosage: 150 MG, 1X/DAY (EVERY NIGHT)
     Route: 048
  8. LYRICA [Suspect]
     Active Substance: PREGABALIN
     Dosage: 75 MG, 2X/DAY (DURING AM AND AFTERNOON)
     Route: 048
  9. ADVAIR DISKUS [Concomitant]
     Active Substance: FLUTICASONE PROPIONATE\SALMETEROL XINAFOATE
     Indication: CHRONIC OBSTRUCTIVE PULMONARY DISEASE
     Dosage: 2X/DAY (FLUTICASONE PROPIONATE 250 - SALMETEROL XINAFOATE 50MCG/DOSE INHALE 1 PUFF
     Route: 055

REACTIONS (8)
  - Dysthymic disorder [Unknown]
  - Nausea [Unknown]
  - Myositis [Unknown]
  - Myalgia [Unknown]
  - Obesity [Unknown]
  - Tobacco abuse [Unknown]
  - Asthma [Unknown]
  - Vomiting [Unknown]
